FAERS Safety Report 9994996 (Version 1)
Quarter: 2014Q1

REPORT INFORMATION
  Report Type: Spontaneous
  Country: US (occurrence: None)
  Receive Date: 20140218
  Receipt Date: 20140218
  Transmission Date: 20141002
  Serious: Yes (Other)
  Sender: FDA-Public Use
  Company Number: 1000052064

PATIENT
  Age: 52 Year
  Sex: Female

DRUGS (6)
  1. VIIBRYD [Suspect]
     Indication: DEPRESSION
     Route: 048
     Dates: start: 20131204
  2. VICTOZA [Suspect]
     Indication: WEIGHT DECREASED
     Dates: start: 20131204
  3. NEXIUM (ESOMEPRAZOLE) (ESOMEPRAZOLE) [Concomitant]
  4. IBUPROFEN (IBUPROFEN) [Concomitant]
  5. LEVOTHYROXINE (LEVOTHYROXINE SODIUM) (LEVOTHYROXINE SODIUM) [Concomitant]
  6. ENALAPRIL (ENALAPRIL) [Concomitant]

REACTIONS (1)
  - Nausea [None]
